FAERS Safety Report 25046193 (Version 1)
Quarter: 2025Q1

REPORT INFORMATION
  Report Type: Spontaneous
  Country: GB (occurrence: GB)
  Receive Date: 20250306
  Receipt Date: 20250306
  Transmission Date: 20250409
  Serious: Yes (Hospitalization)
  Sender: MYLAN
  Company Number: GB-MYLANLABS-2025M1018799

PATIENT
  Sex: Male

DRUGS (2)
  1. CLOZARIL [Suspect]
     Active Substance: CLOZAPINE
     Indication: Schizophrenia
  2. NICOTINE [Concomitant]
     Active Substance: NICOTINE
     Indication: Tobacco user

REACTIONS (3)
  - Gastrointestinal haemorrhage [Unknown]
  - Discoloured vomit [Unknown]
  - Alanine aminotransferase increased [Unknown]
